FAERS Safety Report 10900645 (Version 3)
Quarter: 2015Q1

REPORT INFORMATION
  Report Type: Spontaneous
  Country: AR (occurrence: AR)
  Receive Date: 20150310
  Receipt Date: 20150324
  Transmission Date: 20150721
  Serious: Yes (Other)
  Sender: FDA-Public Use
  Company Number: AR-ELI_LILLY_AND_COMPANY-AR201503002891

PATIENT
  Age: 62 Year
  Sex: Male

DRUGS (7)
  1. CARVEDILOL. [Concomitant]
     Active Substance: CARVEDILOL
     Dosage: 50 MG, UNK
  2. LOTRIAL                            /00574902/ [Concomitant]
  3. LASIX [Concomitant]
     Active Substance: FUROSEMIDE
     Dosage: 40 MG, UNK
  4. HUMALOG [Suspect]
     Active Substance: INSULIN LISPRO
     Indication: TYPE 2 DIABETES MELLITUS
     Dosage: 120 IU, BID
     Route: 065
     Dates: start: 201501
  5. LANSOPRAL [Concomitant]
     Active Substance: LANSOPRAZOLE
  6. VASOTENAL EZ [Concomitant]
  7. ASPIRIN                            /00002701/ [Concomitant]
     Active Substance: ASPIRIN

REACTIONS (6)
  - Blood pressure decreased [Recovered/Resolved]
  - Heart rate abnormal [Unknown]
  - Blood pressure abnormal [Unknown]
  - Syncope [Recovered/Resolved]
  - Blood glucose increased [Unknown]
  - Drug dose omission [Unknown]

NARRATIVE: CASE EVENT DATE: 20150304
